FAERS Safety Report 17581332 (Version 1)
Quarter: 2020Q1

REPORT INFORMATION
  Report Type: Spontaneous
  Country: IT (occurrence: IT)
  Receive Date: 20200325
  Receipt Date: 20200325
  Transmission Date: 20200409
  Serious: Yes (Disabling)
  Sender: FDA-Public Use
  Company Number: IT-MYLANLABS-2020M1030439

PATIENT
  Age: 50 Year
  Sex: Male
  Weight: 64 kg

DRUGS (1)
  1. LEVOFLOXACIN. [Suspect]
     Active Substance: LEVOFLOXACIN
     Indication: OTITIS MEDIA
     Dosage: 500 MG, QD
     Route: 048
     Dates: start: 20180529, end: 20180605

REACTIONS (2)
  - Tooth loss [Not Recovered/Not Resolved]
  - Tendonitis [Not Recovered/Not Resolved]

NARRATIVE: CASE EVENT DATE: 20190328
